FAERS Safety Report 12845567 (Version 3)
Quarter: 2020Q2

REPORT INFORMATION
  Report Type: Spontaneous
  Country: US (occurrence: US)
  Receive Date: 20161013
  Receipt Date: 20200423
  Transmission Date: 20200713
  Serious: No
  Sender: FDA-Public Use
  Company Number: US-JAZZ-2016-US-013807

PATIENT
  Age: 30 Year
  Sex: Male

DRUGS (2)
  1. ADDERALL [Concomitant]
     Active Substance: AMPHETAMINE ASPARTATE\AMPHETAMINE SULFATE\DEXTROAMPHETAMINE SACCHARATE\DEXTROAMPHETAMINE SULFATE
  2. XYREM [Suspect]
     Active Substance: SODIUM OXYBATE
     Indication: NARCOLEPSY
     Dosage: 2.25 G, BID
     Route: 048
     Dates: start: 20160717, end: 20160815

REACTIONS (5)
  - Malaise [Unknown]
  - Bruxism [Unknown]
  - Dyspnoea [Recovered/Resolved]
  - Nausea [Unknown]
  - Sleep paralysis [Not Recovered/Not Resolved]

NARRATIVE: CASE EVENT DATE: 2016
